FAERS Safety Report 9522963 (Version 2)
Quarter: 2015Q4

REPORT INFORMATION
  Report Type: Report from Study
  Country: US (occurrence: US)
  Receive Date: 20130913
  Receipt Date: 20151012
  Transmission Date: 20160305
  Serious: Yes (Other)
  Sender: FDA-Public Use
  Company Number: US-ROCHE-1273723

PATIENT
  Age: 60 Year
  Sex: Female

DRUGS (26)
  1. TIMOLOL. [Concomitant]
     Active Substance: TIMOLOL
     Route: 065
     Dates: start: 20130606, end: 20130606
  2. WARFARIN [Concomitant]
     Active Substance: WARFARIN
     Route: 065
     Dates: start: 20110607
  3. AZASITE [Concomitant]
     Active Substance: AZITHROMYCIN MONOHYDRATE
     Route: 065
  4. COMBIGAN [Concomitant]
     Active Substance: BRIMONIDINE TARTRATE\TIMOLOL MALEATE
     Dosage: 0.2-0.5% AT 7:15 AM
     Route: 065
     Dates: start: 20130606, end: 20130606
  5. CARVEDILOL. [Concomitant]
     Active Substance: CARVEDILOL
     Route: 065
     Dates: start: 20110607
  6. LUCENTIS [Suspect]
     Active Substance: RANIBIZUMAB
     Indication: DIABETIC RETINAL OEDEMA
     Route: 050
  7. LUCENTIS [Suspect]
     Active Substance: RANIBIZUMAB
     Indication: DIABETIC RETINOPATHY
  8. DUREZOL [Concomitant]
     Active Substance: DIFLUPREDNATE
     Route: 050
     Dates: start: 20130606, end: 20130606
  9. TIMOLOL. [Concomitant]
     Active Substance: TIMOLOL
     Route: 065
     Dates: start: 20120601, end: 20120601
  10. MYDRIACYL [Concomitant]
     Active Substance: TROPICAMIDE
     Dosage: ONLY USE 4 DAYS PRIOR TO COMING FOR LASER TX
     Route: 065
     Dates: start: 20120220
  11. AZOPT [Concomitant]
     Active Substance: BRINZOLAMIDE
     Route: 065
     Dates: start: 20120220, end: 20120220
  12. FLOVENT HFA [Concomitant]
     Active Substance: FLUTICASONE PROPIONATE
     Dosage: ACTUATION AEROSOL INHALER INHALATION
     Route: 065
  13. PROPARACAINE [Concomitant]
     Active Substance: PROPARACAINE
  14. LIDOCAINE. [Concomitant]
     Active Substance: LIDOCAINE
     Route: 058
  15. BETADINE [Concomitant]
     Active Substance: POVIDONE-IODINE
  16. GABAPENTIN. [Concomitant]
     Active Substance: GABAPENTIN
     Route: 048
  17. POLYTRIM [Concomitant]
     Active Substance: POLYMYXIN B SULFATE\TRIMETHOPRIM SULFATE
     Dosage: 0.1%-10,000 UNITS/ML
     Route: 065
     Dates: start: 20121019, end: 20121019
  18. DIAMOX SEQUELS [Concomitant]
     Active Substance: ACETAZOLAMIDE
     Dosage: AT BREAKFAST
     Route: 048
     Dates: start: 20120220, end: 20120220
  19. PROAIR HFA [Concomitant]
     Active Substance: ALBUTEROL SULFATE
     Dosage: ACTUATION AEROSOL INHALER
     Route: 065
     Dates: start: 20110607
  20. LASIX [Concomitant]
     Active Substance: FUROSEMIDE
     Route: 065
     Dates: start: 20110607
  21. AVASTIN [Suspect]
     Active Substance: BEVACIZUMAB
     Indication: PRODUCT USED FOR UNKNOWN INDICATION
     Route: 065
  22. PROTONIX (UNITED STATES) [Concomitant]
     Route: 065
     Dates: start: 20110607
  23. VITAMIN C [Concomitant]
     Active Substance: ASCORBIC ACID
     Route: 065
     Dates: start: 20110607
  24. BESIVANCE [Concomitant]
     Active Substance: BESIFLOXACIN
     Route: 065
  25. METFORMIN [Concomitant]
     Active Substance: METFORMIN HYDROCHLORIDE
     Route: 048
     Dates: start: 20110607
  26. BROMDAY [Concomitant]
     Active Substance: BROMFENAC SODIUM
     Route: 065

REACTIONS (5)
  - Retinal laser coagulation [Unknown]
  - Retinopathy hypertensive [Unknown]
  - Optic disc haemorrhage [Unknown]
  - Macular oedema [Unknown]
  - Glaucoma [Unknown]

NARRATIVE: CASE EVENT DATE: 20130606
